FAERS Safety Report 5601252-2 (Version None)
Quarter: 2008Q1

REPORT INFORMATION
  Report Type: 
  Country: None (occurrence: None)
  Receive Date: 20080124
  Receipt Date: 20080117
  Transmission Date: 20080703
  Serious: Yes (Congenital Anomaly)
  Sender: FDA-Public Use
  Company Number: A0685048A

PATIENT
  Sex: Male

DRUGS (2)
  1. PAXIL [Suspect]
     Indication: DEPRESSION
     Dosage: 40MG TWICE PER DAY
     Dates: start: 20030901, end: 20060330
  2. PRENATAL VITAMINS [Concomitant]

REACTIONS (6)
  - BREECH PRESENTATION [None]
  - DRUG EXPOSURE DURING PREGNANCY [None]
  - DYSPNOEA [None]
  - HEART DISEASE CONGENITAL [None]
  - PREMATURE BABY [None]
  - PULMONARY MALFORMATION [None]
